FAERS Safety Report 10283904 (Version 1)
Quarter: 2014Q3

REPORT INFORMATION
  Report Type: Spontaneous
  Country: US (occurrence: US)
  Receive Date: 20140708
  Receipt Date: 20140708
  Transmission Date: 20150326
  Serious: No
  Sender: FDA-Public Use
  Company Number: US-AMGEN INC.-USASP2014050757

PATIENT
  Age: 51 Year
  Sex: Female

DRUGS (1)
  1. ENBREL [Suspect]
     Active Substance: ETANERCEPT
     Indication: RHEUMATOID ARTHRITIS
     Dosage: UNK UNK, QWK
     Route: 065
     Dates: start: 20140105, end: 20140630

REACTIONS (4)
  - Musculoskeletal stiffness [Unknown]
  - Joint stiffness [Unknown]
  - Arthralgia [Unknown]
  - Hand deformity [Unknown]

NARRATIVE: CASE EVENT DATE: 201406
